FAERS Safety Report 6805629-9 (Version None)
Quarter: 2010Q2

REPORT INFORMATION
  Report Type: 
  Country: None (occurrence: None)
  Receive Date: 20100628
  Receipt Date: 20080318
  Transmission Date: 20101027
  Serious: Yes (Other)
  Sender: FDA-Public Use
  Company Number: US-PFIZER INC-2008007598

PATIENT
  Sex: Female
  Weight: 55.8 kg

DRUGS (8)
  1. REVATIO [Suspect]
     Indication: PULMONARY HYPERTENSION
     Route: 048
     Dates: start: 20070901, end: 20071101
  2. AMLODIPINE [Concomitant]
  3. LASIX [Concomitant]
  4. POTASSIUM [Concomitant]
  5. LIPITOR [Concomitant]
  6. VERAPAMIL [Concomitant]
  7. ZETIA [Concomitant]
  8. IRON [Concomitant]

REACTIONS (2)
  - DIARRHOEA [None]
  - EPISTAXIS [None]
